FAERS Safety Report 8862510 (Version 2)
Quarter: 2012Q4

REPORT INFORMATION
  Report Type: 
  Country: US (occurrence: US)
  Receive Date: 20121026
  Receipt Date: 20121211
  Transmission Date: 20130627
  Serious: Yes (Other)
  Sender: FDA-Public Use
  Company Number: US-JNJFOC-20121011207

PATIENT
  Age: 90 None
  Sex: Female
  Weight: 51.71 kg

DRUGS (6)
  1. XARELTO [Suspect]
     Indication: CEREBROVASCULAR ACCIDENT PROPHYLAXIS
     Route: 048
     Dates: start: 201207
  2. XARELTO [Suspect]
     Indication: ATRIAL FIBRILLATION
     Route: 048
     Dates: start: 201207
  3. NORVASC [Concomitant]
     Indication: CARDIAC DISORDER
     Route: 048
  4. DIGOXIN [Concomitant]
     Indication: CARDIAC DISORDER
     Route: 048
  5. COSOPT [Concomitant]
     Indication: EYE DISORDER
     Route: 047
  6. PRED MILD [Concomitant]
     Indication: EYE DISORDER
     Route: 047

REACTIONS (11)
  - Arthropathy [Not Recovered/Not Resolved]
  - Bone disorder [Not Recovered/Not Resolved]
  - Posture abnormal [Not Recovered/Not Resolved]
  - Body height decreased [Recovered/Resolved]
  - Pain [Unknown]
  - Impaired healing [Recovered/Resolved]
  - Laceration [Recovered/Resolved]
  - Insomnia [Recovered/Resolved]
  - Inappropriate schedule of drug administration [Not Recovered/Not Resolved]
  - Wound secretion [Recovered/Resolved]
  - Pain in extremity [Unknown]
